FAERS Safety Report 18536234 (Version 1)
Quarter: 2020Q4

REPORT INFORMATION
  Report Type: Other
  Country: US (occurrence: US)
  Receive Date: 20201124
  Receipt Date: 20201124
  Transmission Date: 20210114
  Serious: Yes (Hospitalization)
  Sender: FDA-Public Use
  Company Number: US-ROCHE-2716243

PATIENT
  Age: 63 Year
  Sex: Male

DRUGS (25)
  1. LEVETIRACETAM. [Concomitant]
     Active Substance: LEVETIRACETAM
     Indication: SPEECH DISORDER
  2. LOSARTAN. [Concomitant]
     Active Substance: LOSARTAN
  3. CALCIUM CARBONATE. [Concomitant]
     Active Substance: CALCIUM CARBONATE
  4. FLUTICASONE. [Concomitant]
     Active Substance: FLUTICASONE
  5. ACYCLOVIR. [Concomitant]
     Active Substance: ACYCLOVIR
     Route: 042
  6. THIAMINE. [Concomitant]
     Active Substance: THIAMINE
  7. CYCLOSPORINE. [Suspect]
     Active Substance: CYCLOSPORINE
     Indication: GLOMERULONEPHRITIS MEMBRANOUS
     Route: 065
  8. CYCLOPHOSPHAMIDE. [Suspect]
     Active Substance: CYCLOPHOSPHAMIDE
     Indication: GLOMERULONEPHRITIS MEMBRANOUS
     Route: 065
  9. SULFAMETHOXAZOLE/TRIMETHOPRIM [Concomitant]
     Active Substance: SULFAMETHOXAZOLE\TRIMETHOPRIM
  10. DOXYCYCLINE. [Concomitant]
     Active Substance: DOXYCYCLINE
  11. CEFTRIAXONE. [Suspect]
     Active Substance: CEFTRIAXONE
     Indication: BORRELIA INFECTION
     Route: 042
  12. ALTEPLASE. [Concomitant]
     Active Substance: ALTEPLASE
     Route: 042
  13. HYDROCHLOROTHIAZIDE. [Concomitant]
     Active Substance: HYDROCHLOROTHIAZIDE
  14. FERROUS SULFATE. [Concomitant]
     Active Substance: FERROUS SULFATE
  15. VANCOMYCIN [Concomitant]
     Active Substance: VANCOMYCIN
  16. PRAVASTATIN. [Concomitant]
     Active Substance: PRAVASTATIN
  17. OMEPRAZOLE. [Concomitant]
     Active Substance: OMEPRAZOLE
  18. ASPIRIN. [Concomitant]
     Active Substance: ASPIRIN
  19. PREDNISOLONE. [Concomitant]
     Active Substance: PREDNISOLONE
     Indication: UVEITIS
     Route: 047
  20. RITUXIMAB. [Suspect]
     Active Substance: RITUXIMAB
     Indication: GLOMERULONEPHRITIS MEMBRANOUS
     Route: 065
  21. PREDNISONE. [Suspect]
     Active Substance: PREDNISONE
     Indication: GLOMERULONEPHRITIS MEMBRANOUS
     Route: 048
  22. METOPROLOL. [Concomitant]
     Active Substance: METOPROLOL
  23. CHOLECALCIFEROL [Concomitant]
     Active Substance: CHOLECALCIFEROL
  24. AMPICILLIN [Concomitant]
     Active Substance: AMPICILLIN
  25. BUTALBITAL, ACETAMINOPHEN, AND CAFFEINE [Concomitant]
     Active Substance: ACETAMINOPHEN\BUTALBITAL\CAFFEINE
     Indication: UVEITIS
     Route: 048

REACTIONS (3)
  - Encephalitis [Recovering/Resolving]
  - Borrelia infection [Recovering/Resolving]
  - Rash [Unknown]
